FAERS Safety Report 13654397 (Version 1)
Quarter: 2017Q2

REPORT INFORMATION
  Report Type: Spontaneous
  Country: GB (occurrence: GB)
  Receive Date: 20170615
  Receipt Date: 20170615
  Transmission Date: 20170830
  Serious: Yes (Other)
  Sender: FDA-Public Use
  Company Number: GB-CHARTWELL PHARMA-2022055

PATIENT
  Age: 35 Year
  Sex: Female

DRUGS (2)
  1. METRONIDAZOLE. [Suspect]
     Active Substance: METRONIDAZOLE
     Indication: CARDIAC INFECTION
  2. MEROPENEM. [Suspect]
     Active Substance: MEROPENEM

REACTIONS (4)
  - Neurotoxicity [Recovered/Resolved]
  - Coordination abnormal [Recovered/Resolved]
  - Ataxia [Recovered/Resolved]
  - Dysarthria [Recovered/Resolved]
